FAERS Safety Report 13780492 (Version 2)
Quarter: 2017Q3

REPORT INFORMATION
  Report Type: Spontaneous
  Country: HU (occurrence: HU)
  Receive Date: 20170724
  Receipt Date: 20170728
  Transmission Date: 20171127
  Serious: Yes (Hospitalization)
  Sender: FDA-Public Use
  Company Number: HU-B.I. PHARMACEUTICALS,INC./RIDGEFIELD-2017-BI-039310

PATIENT
  Sex: Female

DRUGS (2)
  1. PRADAXA [Suspect]
     Active Substance: DABIGATRAN ETEXILATE MESYLATE
     Indication: PRODUCT USED FOR UNKNOWN INDICATION
     Route: 048
  2. PRADAXA [Suspect]
     Active Substance: DABIGATRAN ETEXILATE MESYLATE
     Route: 048
     Dates: start: 201707

REACTIONS (12)
  - Cataract [Unknown]
  - Dizziness [Unknown]
  - Malaise [Unknown]
  - Off label use [Unknown]
  - Asthenia [Unknown]
  - Abdominal pain upper [Unknown]
  - Reproductive tract disorder [Unknown]
  - Prescription drug used without a prescription [Unknown]
  - Suspected counterfeit product [Unknown]
  - Fall [Unknown]
  - Incorrect dose administered [Unknown]
  - Intentional product misuse [Unknown]

NARRATIVE: CASE EVENT DATE: 201707
